FAERS Safety Report 24668384 (Version 2)
Quarter: 2024Q4

REPORT INFORMATION
  Report Type: Spontaneous
  Country: DE (occurrence: DE)
  Receive Date: 20241127
  Receipt Date: 20241204
  Transmission Date: 20250114
  Serious: Yes (Other)
  Sender: AUROBINDO
  Company Number: DE-009507513-2411DEU004821

PATIENT
  Age: 19 Year

DRUGS (7)
  1. AMBRISENTAN [Suspect]
     Active Substance: AMBRISENTAN
     Indication: Heritable pulmonary arterial hypertension
     Dosage: 10 MILLIGRAM
     Route: 065
  2. EPLERENONE [Suspect]
     Active Substance: EPLERENONE
     Indication: Heritable pulmonary arterial hypertension
     Dosage: 50 MILLIGRAM, ONCE A DAY
     Route: 065
  3. SOTATERCEPT [Suspect]
     Active Substance: SOTATERCEPT
     Indication: Heritable pulmonary arterial hypertension
     Dosage: 0.3 MILLIGRAM/KILOGRAM (FIRST DOSE)
     Route: 065
     Dates: start: 202407
  4. SOTATERCEPT [Suspect]
     Active Substance: SOTATERCEPT
     Dosage: 0.7 MILLIGRAM/KILOGRAM (LABEL-COMPLIANT)
     Route: 065
  5. RIOCIGUAT [Suspect]
     Active Substance: RIOCIGUAT
     Indication: Heritable pulmonary arterial hypertension
     Dosage: 2.5 MILLIGRAM, 3 TIMES A DAY
     Route: 065
  6. TREPROSTINIL [Suspect]
     Active Substance: TREPROSTINIL
     Indication: Heritable pulmonary arterial hypertension
     Dosage: 65 NANOGRAM PER KILOGRAM (PER MINUTE)
     Route: 042
  7. TORSEMIDE [Suspect]
     Active Substance: TORSEMIDE
     Indication: Heritable pulmonary arterial hypertension
     Dosage: 100 MILLIGRAM, ONCE A DAY
     Route: 065

REACTIONS (1)
  - Pericardial effusion [Recovering/Resolving]

NARRATIVE: CASE EVENT DATE: 20240301
